FAERS Safety Report 10637501 (Version 3)
Quarter: 2015Q1

REPORT INFORMATION
  Report Type: Spontaneous
  Country: CA (occurrence: CA)
  Receive Date: 20141208
  Receipt Date: 20150303
  Transmission Date: 20150720
  Serious: Yes (Disabling, Other)
  Sender: FDA-Public Use
  Company Number: CA-SHIRE-CA201406518

PATIENT
  Age: 34 Year
  Sex: Male
  Weight: 104.31 kg

DRUGS (4)
  1. SALOFALK                           /00000301/ [Concomitant]
     Active Substance: MESALAMINE
     Indication: COLITIS
     Dosage: 2 G, 1X/DAY:QD (AT HS)
     Route: 054
     Dates: start: 20140529, end: 20140924
  2. SALOFALK                           /00000301/ [Concomitant]
     Active Substance: MESALAMINE
     Dosage: 2 G, OTHER (EVERY OTHER DAY)
     Route: 054
     Dates: start: 20140925
  3. MEZAVANT [Suspect]
     Active Substance: MESALAMINE
     Indication: COLITIS ULCERATIVE
     Dosage: 2.4 G, 1X/DAY:QD
     Route: 048
     Dates: start: 20140529, end: 20140612
  4. MEZAVANT [Suspect]
     Active Substance: MESALAMINE
     Dosage: 2.4 G, 1X/DAY:QD
     Route: 048
     Dates: start: 20140911, end: 20140925

REACTIONS (4)
  - Haematochezia [Unknown]
  - Gout [Recovered/Resolved]
  - Fatigue [Unknown]
  - Condition aggravated [Unknown]

NARRATIVE: CASE EVENT DATE: 20140612
